FAERS Safety Report 15593602 (Version 2)
Quarter: 2019Q3

REPORT INFORMATION
  Report Type: Spontaneous
  Country: US (occurrence: US)
  Receive Date: 20181106
  Receipt Date: 20190930
  Transmission Date: 20191004
  Serious: No
  Sender: FDA-Public Use
  Company Number: US-PFIZER INC-2018456060

PATIENT
  Age: 82 Year
  Sex: Female
  Weight: 77.11 kg

DRUGS (3)
  1. CELECOXIB. [Suspect]
     Active Substance: CELECOXIB
     Indication: PAIN
     Dosage: 200 MG, 1X/DAY
     Route: 048
  2. CELECOXIB. [Suspect]
     Active Substance: CELECOXIB
     Indication: ARTHRITIS
  3. TRAMADOL. [Concomitant]
     Active Substance: TRAMADOL
     Indication: BACK DISORDER
     Dosage: UNK

REACTIONS (1)
  - Drug ineffective [Unknown]
